FAERS Safety Report 8846925 (Version 1)
Quarter: 2012Q4

REPORT INFORMATION
  Report Type: Spontaneous
  Country: US (occurrence: None)
  Receive Date: 20121017
  Receipt Date: 20121017
  Transmission Date: 20130627
  Serious: Yes (Other)
  Sender: FDA-Public Use
  Company Number: None

PATIENT
  Age: 39 Year
  Sex: Male
  Weight: 70.31 kg

DRUGS (1)
  1. VYVANSE [Suspect]
     Indication: ADHD
     Dosage: 1 capsule/tab once daily po
     Route: 048
     Dates: start: 20111101, end: 20121016

REACTIONS (7)
  - Aggression [None]
  - Abnormal behaviour [None]
  - Emotional poverty [None]
  - Anger [None]
  - Condition aggravated [None]
  - Weight decreased [None]
  - Marital problem [None]
